FAERS Safety Report 5601062-6 (Version None)
Quarter: 2008Q1

REPORT INFORMATION
  Report Type: 
  Country: None (occurrence: None)
  Receive Date: 20080122
  Receipt Date: 20080122
  Transmission Date: 20080703
  Serious: Yes (Hospitalization)
  Sender: FDA-Public Use
  Company Number: None

PATIENT
  Age: 55 Month
  Sex: Male
  Weight: 14.2 kg

DRUGS (1)
  1. VINCRISTINE [Suspect]
     Indication: ACUTE LYMPHOCYTIC LEUKAEMIA
     Dosage: 1.5MG/M2 -0.9MG- DAYS 1 + 8 OF CHEM IV
     Route: 042
     Dates: start: 20071101

REACTIONS (2)
  - CONVULSION [None]
  - HYPONATRAEMIA [None]
